FAERS Safety Report 13932032 (Version 2)
Quarter: 2018Q3

REPORT INFORMATION
  Report Type: Report from Study
  Country: CA (occurrence: CA)
  Receive Date: 20170904
  Receipt Date: 20180806
  Transmission Date: 20181010
  Serious: Yes (Hospitalization, Other)
  Sender: FDA-Public Use
  Company Number: CA-AMGEN-CANSL2017131294

PATIENT
  Sex: Female

DRUGS (12)
  1. XARELTO [Concomitant]
     Active Substance: RIVAROXABAN
     Dosage: 15 MG, QD
     Route: 065
  2. TELMISARTAN. [Concomitant]
     Active Substance: TELMISARTAN
     Dosage: 80 MG, UNK
  3. SYNTHROID [Concomitant]
     Active Substance: LEVOTHYROXINE SODIUM
     Dosage: 0.025 MG, QD
     Route: 065
  4. TYLENOL [Suspect]
     Active Substance: ACETAMINOPHEN
     Indication: TENSION HEADACHE
     Dosage: UNK
     Route: 065
  5. VITAMIN D [Concomitant]
     Active Substance: CHOLECALCIFEROL
     Dosage: 1000 UNIT, QD
     Route: 065
  6. ALENDRONATE [Concomitant]
     Active Substance: ALENDRONATE SODIUM
     Dosage: 70 MG, QWK
     Route: 065
  7. PANTOPRAZOLE [Concomitant]
     Active Substance: PANTOPRAZOLE
     Dosage: 40 MG, UNK
     Route: 065
  8. TOLOXIN [Concomitant]
     Active Substance: DIGOXIN
     Dosage: 0.125 MG, UNK
     Route: 065
  9. ENBREL [Suspect]
     Active Substance: ETANERCEPT
     Indication: RHEUMATOID ARTHRITIS
     Dosage: 50 MG, UNK
     Route: 065
     Dates: start: 20070125
  10. HYDROXYCHLOROQUINE [Concomitant]
     Active Substance: HYDROXYCHLOROQUINE
     Dosage: 200 MG, QD
     Route: 065
  11. ATENOLOL. [Concomitant]
     Active Substance: ATENOLOL
     Dosage: 50 MG, QD
     Route: 065
  12. CODEINE [Suspect]
     Active Substance: CODEINE
     Indication: TENSION HEADACHE
     Dosage: UNK
     Route: 065

REACTIONS (7)
  - Tension headache [Unknown]
  - Constipation [Unknown]
  - Memory impairment [Unknown]
  - Inappropriate schedule of drug administration [Unknown]
  - Ulcer haemorrhage [Unknown]
  - Iron deficiency [Unknown]
  - Weight decreased [Unknown]

NARRATIVE: CASE EVENT DATE: 2016
